FAERS Safety Report 24044377 (Version 2)
Quarter: 2025Q2

REPORT INFORMATION
  Report Type: Spontaneous
  Country: US (occurrence: US)
  Receive Date: 20240703
  Receipt Date: 20250529
  Transmission Date: 20250716
  Serious: Yes (Hospitalization)
  Sender: SANOFI AVENTIS
  Company Number: US-SA-SAC20240628000116

PATIENT
  Age: 64 Year
  Sex: Female

DRUGS (3)
  1. DUPIXENT [Suspect]
     Active Substance: DUPILUMAB
     Indication: Asthma
     Dosage: UNK UNK, QOW
     Route: 058
     Dates: start: 20211101
  2. LIDOCAINE [Concomitant]
     Active Substance: LIDOCAINE
  3. CORTISONE [Concomitant]
     Active Substance: CORTISONE

REACTIONS (11)
  - Influenza [Unknown]
  - Blister [Unknown]
  - Abdominal discomfort [Unknown]
  - Stomatitis [Unknown]
  - Wheezing [Unknown]
  - Dysphonia [Unknown]
  - Oropharyngeal pain [Unknown]
  - Eye irritation [Unknown]
  - Rash [Recovered/Resolved]
  - Rash [Unknown]
  - Therapeutic response shortened [Unknown]

NARRATIVE: CASE EVENT DATE: 20210101
